FAERS Safety Report 11142915 (Version 1)
Quarter: 2015Q2

REPORT INFORMATION
  Report Type: Other
  Country: GB (occurrence: GB)
  Receive Date: 20150525
  Receipt Date: 20150525
  Transmission Date: 20150821
  Serious: Yes (Hospitalization)
  Sender: FDA-Public Use
  Company Number: GB-MYLANLABS-2015M1015988

PATIENT

DRUGS (1)
  1. ALENDRONATE [Suspect]
     Active Substance: ALENDRONATE SODIUM
     Indication: OSTEOPOROSIS
     Dosage: 70 MG, QW
     Route: 048
     Dates: start: 2005, end: 2015

REACTIONS (4)
  - Atypical femur fracture [Not Recovered/Not Resolved]
  - Bone lesion [Unknown]
  - Arthralgia [Not Recovered/Not Resolved]
  - Bone formation increased [Unknown]

NARRATIVE: CASE EVENT DATE: 20150423
